FAERS Safety Report 8557525-7 (Version None)
Quarter: 2012Q3

REPORT INFORMATION
  Report Type: 
  Country: None (occurrence: None)
  Receive Date: 20120801
  Receipt Date: 20120730
  Transmission Date: 20120928
  Serious: Yes (Disabling)
  Sender: FDA-Public Use
  Company Number: US-PFIZER INC-2012148540

PATIENT
  Sex: Female
  Weight: 91 kg

DRUGS (5)
  1. PREMARIN [Suspect]
     Dosage: UNK
     Dates: start: 20070514
  2. AMBIEN [Concomitant]
     Indication: SLEEP DISORDER
     Dosage: 12.5 MG, DAILY
     Route: 048
  3. PROTONIX [Suspect]
     Indication: CHOLECYSTECTOMY
     Dosage: 40 MG, DAILY
     Route: 048
  4. PREMARIN [Suspect]
     Indication: HORMONE REPLACEMENT THERAPY
     Dosage: 0.9 MG, 1X/DAY
     Route: 048
     Dates: start: 19980101
  5. MAXZIDE [Concomitant]
     Indication: HYPERTENSION
     Dosage: 37.5/25 MG,DAILY
     Route: 048

REACTIONS (3)
  - ANXIETY [None]
  - AGORAPHOBIA [None]
  - DEPRESSION [None]
